FAERS Safety Report 16056770 (Version 1)
Quarter: 2019Q2

REPORT INFORMATION
  Report Type: Spontaneous
  Country: US (occurrence: US)
  Receive Date: 20190310
  Receipt Date: 20190310
  Transmission Date: 20190711
  Serious: No
  Sender: FDA-Public Use
  Company Number: None

PATIENT
  Age: 4 Year
  Sex: Male
  Weight: 20.25 kg

DRUGS (1)
  1. CEPHALEXIN. [Suspect]
     Active Substance: CEPHALEXIN
     Indication: SKIN INFECTION
     Dosage: ?          QUANTITY:5 ML;?
     Route: 048
     Dates: start: 20190227, end: 20190309

REACTIONS (3)
  - Nightmare [None]
  - Fear [None]
  - Irritability [None]

NARRATIVE: CASE EVENT DATE: 20190228
